FAERS Safety Report 4879178-1 (Version None)
Quarter: 2006Q1

REPORT INFORMATION
  Report Type: 
  Country: None (occurrence: None)
  Receive Date: 20060112
  Receipt Date: 20051223
  Transmission Date: 20060701
  Serious: Yes (Hospitalization)
  Sender: FDA-Public Use
  Company Number: US-ROCHE-430194

PATIENT
  Age: 48 Year
  Sex: Male

DRUGS (6)
  1. FUZEON [Suspect]
     Dosage: ROUTE OF ADMINISTRATION REPORTED AS INJECTION.
     Route: 050
     Dates: start: 20050615, end: 20050915
  2. FUZEON [Suspect]
     Route: 050
     Dates: start: 20051215, end: 20051224
  3. APTIVUS [Concomitant]
     Route: 065
     Dates: start: 20050615
  4. NORVIR [Concomitant]
     Route: 065
     Dates: start: 20050615
  5. COMBIVIR [Concomitant]
     Route: 065
     Dates: start: 20040615
  6. VIREAD [Concomitant]
     Route: 065
     Dates: start: 20040615

REACTIONS (5)
  - ANAEMIA [None]
  - COUGH [None]
  - NEUTROPENIA [None]
  - PYREXIA [None]
  - WHITE BLOOD CELL COUNT DECREASED [None]
